FAERS Safety Report 10102521 (Version 1)
Quarter: 2014Q2

REPORT INFORMATION
  Report Type: Spontaneous
  Country: KR (occurrence: None)
  Receive Date: 20140422
  Receipt Date: 20140422
  Transmission Date: 20141212
  Serious: Yes (Disabling)
  Sender: FDA-Public Use
  Company Number: KAD201404-000428

PATIENT
  Age: 44 Year
  Sex: Male

DRUGS (9)
  1. RIBAVIRIN [Suspect]
     Indication: CHRONIC HEPATITIS C
     Route: 048
     Dates: start: 20130326, end: 20130617
  2. BMS-914143 [Suspect]
     Indication: CHRONIC HEPATITIS C
     Route: 058
     Dates: start: 20130326, end: 20130611
  3. PEGINTERFERON ALFA-2A [Suspect]
     Indication: CHRONIC HEPATITIS C
     Dosage: 1 DF (4 UNITS) SUBCUNTANEOUS
     Route: 058
     Dates: start: 20130326, end: 20130611
  4. DACLATASVIR [Suspect]
     Indication: CHRONIC HEPATITIS C
     Route: 048
     Dates: start: 20130326, end: 20130617
  5. PLACEBO [Suspect]
     Indication: CHRONIC HEPATITIS C
     Route: 048
     Dates: start: 20130326, end: 20130617
  6. HYDROXYZINE HCL (HYDROXYZINE HCL) [Concomitant]
  7. PAROXETINE HCL (PAROXETINE HCL) [Concomitant]
  8. TRIAZOLAM (TRIAZOLAM) [Concomitant]
  9. PHYSIOGEL AL REPAIR LOTION (PHYSIOGEL AL REPAIR LOTION) [Concomitant]

REACTIONS (4)
  - Anosmia [None]
  - Pruritus [None]
  - Depressed mood [None]
  - Insomnia [None]
